FAERS Safety Report 4539242-3 (Version None)
Quarter: 2004Q4

REPORT INFORMATION
  Report Type: 
  Country: None (occurrence: None)
  Receive Date: 20041228
  Receipt Date: 20041216
  Transmission Date: 20050328
  Serious: Yes (Other)
  Sender: FDA-Public Use
  Company Number: NL-JNJFOC-20041204811

PATIENT
  Age: 48 Year
  Sex: Female

DRUGS (1)
  1. REMICADE [Suspect]
     Indication: COLITIS ULCERATIVE
     Dosage: 5 INFUSIONS HAVE BEEN ADMINISTERED AT TIME OF EVENT.
     Route: 042

REACTIONS (1)
  - RETINAL VEIN THROMBOSIS [None]
